FAERS Safety Report 12923666 (Version 1)
Quarter: 2016Q4

REPORT INFORMATION
  Report Type: Spontaneous
  Country: US (occurrence: US)
  Receive Date: 20161108
  Receipt Date: 20161108
  Transmission Date: 20170207
  Serious: No
  Sender: FDA-Public Use
  Company Number: None

PATIENT
  Age: 63 Year
  Sex: Male

DRUGS (1)
  1. VOTRIENT [Suspect]
     Active Substance: PAZOPANIB HYDROCHLORIDE
     Indication: LIVER TRANSPLANT

REACTIONS (5)
  - Oral disorder [None]
  - Haemorrhage [None]
  - Impaired healing [None]
  - Dizziness [None]
  - Dysgeusia [None]

NARRATIVE: CASE EVENT DATE: 20161106
